FAERS Safety Report 8394916 (Version 6)
Quarter: 2013Q3

REPORT INFORMATION
  Report Type: Spontaneous
  Country: JP (occurrence: JP)
  Receive Date: 20120208
  Receipt Date: 20130820
  Transmission Date: 20140515
  Serious: Yes (Hospitalization)
  Sender: FDA-Public Use
  Company Number: JP-US-EMD SERONO, INC.-7109283

PATIENT
  Age: 25 Year
  Sex: Female
  Weight: 62 kg

DRUGS (5)
  1. GONAL-F RFF PEN [Suspect]
     Indication: OVULATION INDUCTION
     Route: 058
     Dates: start: 20110214, end: 20110219
  2. PREGNYL [Suspect]
     Indication: OVULATION INDUCTION
     Route: 030
     Dates: start: 20110220, end: 20110220
  3. CLOMIFENE CITRATE [Suspect]
     Indication: OVULATION INDUCTION
     Route: 048
     Dates: start: 20110208, end: 20110212
  4. GLYCORAN [Concomitant]
     Indication: POLYCYSTIC OVARIES
     Route: 048
  5. FOLLICLE-STIMULATING HORMONE, HUMAN [Concomitant]
     Indication: OVULATION INDUCTION

REACTIONS (3)
  - Benign hydatidiform mole [Recovered/Resolved]
  - Ovarian hyperstimulation syndrome [Recovered/Resolved]
  - Adnexal torsion [Recovered/Resolved]
